FAERS Safety Report 7312995-7 (Version None)
Quarter: 2011Q1

REPORT INFORMATION
  Report Type: 
  Country: None (occurrence: None)
  Receive Date: 20110224
  Receipt Date: 20110211
  Transmission Date: 20110831
  Serious: Yes (Other)
  Sender: FDA-Public Use
  Company Number: IT-MYLANLABS-2011S1002055

PATIENT
  Age: 68 Year
  Sex: Male

DRUGS (2)
  1. CARDURA [Concomitant]
     Indication: PRODUCT USED FOR UNKNOWN INDICATION
     Dates: start: 20090101, end: 20090120
  2. SIMVASTATIN [Suspect]
     Indication: HYPERLIPASAEMIA
     Dates: start: 20070101, end: 20101229

REACTIONS (3)
  - NIGHTMARE [None]
  - HALLUCINATION [None]
  - PSYCHOMOTOR HYPERACTIVITY [None]
